FAERS Safety Report 8241723-6 (Version None)
Quarter: 2012Q1

REPORT INFORMATION
  Report Type: 
  Country: None (occurrence: None)
  Receive Date: 20120328
  Receipt Date: 20120322
  Transmission Date: 20120608
  Serious: No
  Sender: FDA-Public Use
  Company Number: US-PFIZER INC-2012075231

PATIENT
  Sex: Female
  Weight: 85.714 kg

DRUGS (2)
  1. THYROID TAB [Concomitant]
     Indication: HYPOTHYROIDISM
     Dosage: 90 MG, 2X/DAY
  2. PRISTIQ [Suspect]
     Indication: ANXIETY
     Dosage: 50 MG, 1X/DAY
     Route: 048
     Dates: start: 20110801, end: 20120101

REACTIONS (2)
  - HYPERSOMNIA [None]
  - DEPRESSED MOOD [None]
